FAERS Safety Report 10618663 (Version 9)
Quarter: 2015Q2

REPORT INFORMATION
  Report Type: Report from Study
  Country: US (occurrence: US)
  Receive Date: 20141202
  Receipt Date: 20150623
  Transmission Date: 20150821
  Serious: Yes (Other)
  Sender: FDA-Public Use
  Company Number: PHEH2014US023832

PATIENT
  Age: 40 Year
  Sex: Female
  Weight: 77.98 kg

DRUGS (4)
  1. ZOLOFT [Concomitant]
     Active Substance: SERTRALINE HYDROCHLORIDE
     Indication: DEPRESSION
     Dosage: 50 MG, QD WITH WATER
     Route: 048
  2. MIRALAX [Concomitant]
     Active Substance: POLYETHYLENE GLYCOL 3350
     Indication: CONSTIPATION
     Dosage: 17 G, QD WITH WATER
     Route: 048
  3. GABAPENTIN. [Concomitant]
     Active Substance: GABAPENTIN
     Indication: PAIN IN EXTREMITY
     Route: 065
  4. GILENYA [Suspect]
     Active Substance: FINGOLIMOD HYDROCHLORIDE
     Indication: MULTIPLE SCLEROSIS
     Dosage: 0.5 MG, QD
     Route: 048
     Dates: start: 2011

REACTIONS (21)
  - Feeding disorder [Unknown]
  - Fatigue [Unknown]
  - Abdominal discomfort [Unknown]
  - Weight increased [Not Recovered/Not Resolved]
  - Breast enlargement [Not Recovered/Not Resolved]
  - Abdominal pain upper [Unknown]
  - Dizziness [Not Recovered/Not Resolved]
  - Pain in extremity [Recovered/Resolved]
  - Pain [Unknown]
  - Disease progression [Not Recovered/Not Resolved]
  - Chest pain [Recovered/Resolved]
  - Feeling abnormal [Unknown]
  - Breast pain [Not Recovered/Not Resolved]
  - Headache [Unknown]
  - Depressed mood [Unknown]
  - Visual impairment [Not Recovered/Not Resolved]
  - Insomnia [Unknown]
  - Glaucoma [Unknown]
  - Memory impairment [Not Recovered/Not Resolved]
  - Diarrhoea [Unknown]
  - Dyspepsia [Unknown]

NARRATIVE: CASE EVENT DATE: 20141012
